FAERS Safety Report 4813244-1 (Version None)
Quarter: 2005Q4

REPORT INFORMATION
  Report Type: 
  Country: None (occurrence: None)
  Receive Date: 20051028
  Receipt Date: 20050415
  Transmission Date: 20060501
  Serious: No
  Sender: FDA-Public Use
  Company Number: US-GLAXOSMITHKLINE-A0554386A

PATIENT
  Age: 74 Year
  Sex: Male

DRUGS (14)
  1. ADVAIR DISKUS 100/50 [Suspect]
     Indication: ASTHMA
     Dosage: 1PUFF VARIABLE DOSE
     Route: 055
  2. NORVASC [Concomitant]
  3. BUMEX [Concomitant]
  4. K-DUR 10 [Concomitant]
  5. ZOCOR [Concomitant]
  6. NITROSTAT [Concomitant]
  7. PROVENTIL [Concomitant]
  8. NITROGLYCERIN [Concomitant]
  9. PLAVIX [Concomitant]
  10. COQ-10 [Concomitant]
  11. MAGNESIUM [Concomitant]
  12. CITRACAL [Concomitant]
  13. FISH OIL [Concomitant]
  14. MULTIMINERAL [Concomitant]

REACTIONS (3)
  - RHINORRHOEA [None]
  - SINUS HEADACHE [None]
  - SINUSITIS [None]
